FAERS Safety Report 8963577 (Version 2)
Quarter: 2013Q3

REPORT INFORMATION
  Report Type: Spontaneous
  Country: US (occurrence: US)
  Receive Date: 20121213
  Receipt Date: 20130805
  Transmission Date: 20140515
  Serious: Yes (Death)
  Sender: FDA-Public Use
  Company Number: US-GENZYME-CERZ-1002731

PATIENT
  Sex: Female
  Weight: 55 kg

DRUGS (6)
  1. CEREZYME [Suspect]
     Indication: GAUCHER^S DISEASE
     Dosage: 6000 U, Q4W
     Route: 042
     Dates: start: 19981027, end: 201110
  2. COUMADIN [Concomitant]
     Indication: ATRIAL FIBRILLATION
     Dosage: UNK
     Route: 065
     Dates: start: 2007
  3. COUMADIN [Concomitant]
     Indication: AORTIC VALVE REPLACEMENT
  4. CARVEDILOL [Concomitant]
     Indication: ARRHYTHMIA
     Dosage: UNK
     Route: 065
  5. AMIODARONE [Concomitant]
     Indication: ARRHYTHMIA
     Dosage: UNK
     Route: 065
  6. LISINOPRIL [Concomitant]
     Indication: HYPERTENSION
     Dosage: UNK
     Route: 065

REACTIONS (1)
  - Parkinsonism [Fatal]
